FAERS Safety Report 8369710-8 (Version None)
Quarter: 2012Q2

REPORT INFORMATION
  Report Type: 
  Country: None (occurrence: None)
  Receive Date: 20120518
  Receipt Date: 20120515
  Transmission Date: 20120825
  Serious: Yes (Life-Threatening)
  Sender: FDA-Public Use
  Company Number: BE-SANOFI-AVENTIS-2012SA034630

PATIENT
  Age: 50 Year
  Sex: Female

DRUGS (4)
  1. ELOXATIN [Suspect]
     Route: 065
     Dates: start: 20120430, end: 20120502
  2. ELOXATIN [Suspect]
     Route: 065
     Dates: start: 20120514, end: 20120516
  3. ALL OTHER THERAPEUTIC PRODUCTS [Concomitant]
     Dosage: FORM: INFUSION
  4. FLUOROURACIL [Concomitant]
     Dates: start: 20120430

REACTIONS (10)
  - ARTERIAL THROMBOSIS [None]
  - PERIPHERAL EMBOLISM [None]
  - TROPONIN INCREASED [None]
  - PAIN IN EXTREMITY [None]
  - PERIPHERAL COLDNESS [None]
  - MUSCLE SPASMS [None]
  - ARTERIOSPASM CORONARY [None]
  - CARDIAC DISORDER [None]
  - CARDIAC FAILURE [None]
  - PARAESTHESIA [None]
